FAERS Safety Report 26148963 (Version 1)
Quarter: 2025Q4

REPORT INFORMATION
  Report Type: Report from Study
  Country: KR (occurrence: KR)
  Receive Date: 20251212
  Receipt Date: 20251212
  Transmission Date: 20260118
  Serious: Yes (Other)
  Sender: ROCHE
  Company Number: KR-ROCHE-10000449643

PATIENT

DRUGS (1)
  1. TOCILIZUMAB [Suspect]
     Active Substance: TOCILIZUMAB
     Indication: Transplant rejection
     Route: 042

REACTIONS (3)
  - Hypogammaglobulinaemia [Unknown]
  - Leukopenia [Unknown]
  - Infection [Unknown]
